FAERS Safety Report 6298470-X (Version None)
Quarter: 2009Q3

REPORT INFORMATION
  Report Type: 
  Country: None (occurrence: None)
  Receive Date: 20090724
  Receipt Date: 20090316
  Transmission Date: 20100115
  Serious: Yes (Other)
  Sender: FDA-Public Use
  Company Number: 2009BI002744

PATIENT
  Age: 27 Year
  Sex: Female

DRUGS (3)
  1. TYSABRI [Suspect]
     Indication: MULTIPLE SCLEROSIS
     Dosage: 300 MG;QM;IV
     Route: 042
     Dates: start: 20080811, end: 20081107
  2. . [Concomitant]
  3. . [Concomitant]

REACTIONS (2)
  - ANAPHYLACTOID REACTION [None]
  - HYPERSENSITIVITY [None]
